FAERS Safety Report 7615733-3 (Version None)
Quarter: 2011Q3

REPORT INFORMATION
  Report Type: 
  Country: None (occurrence: None)
  Receive Date: 20110711
  Receipt Date: 20110627
  Transmission Date: 20111222
  Serious: Yes (Other)
  Sender: FDA-Public Use
  Company Number: DK-1186920

PATIENT
  Sex: Female

DRUGS (6)
  1. XALATAN [Concomitant]
  2. TRUSOPT [Concomitant]
  3. MAXIDEX [Suspect]
     Indication: INFLAMMATION
     Dosage: OPHTHALMIC
     Route: 047
     Dates: start: 20101208
  4. MAXIDEX [Suspect]
     Indication: POSTOPERATIVE CARE
     Dosage: OPHTHALMIC
     Route: 047
     Dates: start: 20101208
  5. BETOPTIC [Concomitant]
  6. DIAMOX SRC [Concomitant]

REACTIONS (1)
  - CUSHING'S SYNDROME [None]
